FAERS Safety Report 22093839 (Version 7)
Quarter: 2024Q1

REPORT INFORMATION
  Report Type: Report from Study
  Country: CA (occurrence: CA)
  Receive Date: 20230314
  Receipt Date: 20240201
  Transmission Date: 20240409
  Serious: Yes (Other)
  Sender: FDA-Public Use
  Company Number: CA-JNJFOC-20230326161

PATIENT
  Age: 23 Year
  Sex: Female

DRUGS (7)
  1. REMICADE [Suspect]
     Active Substance: INFLIXIMAB
     Indication: Crohn^s disease
     Route: 041
     Dates: start: 20210518
  2. REMICADE [Suspect]
     Active Substance: INFLIXIMAB
     Dosage: ORDERED FOR THE PATIENT TO HAD A STAT DOSE THEN MAINTENANCE AT EVERY 8 WEEKS.?THE PATIENT RECEIVED I
     Route: 041
  3. REMICADE [Suspect]
     Active Substance: INFLIXIMAB
     Dosage: THE PATIENT RECEIVED INFUSION ON THE DAY OF REPORT (ON 29-AUG-2023)
     Route: 041
     Dates: start: 20210518
  4. REMICADE [Suspect]
     Active Substance: INFLIXIMAB
     Route: 041
  5. GRAVOL [Concomitant]
     Active Substance: DIMENHYDRINATE
     Indication: Premedication
     Route: 065
  6. TYLENOL [Concomitant]
     Active Substance: ACETAMINOPHEN
     Indication: Premedication
     Route: 048
  7. BENADRYL [Concomitant]
     Active Substance: DIPHENHYDRAMINE HYDROCHLORIDE
     Indication: Premedication
     Route: 065

REACTIONS (8)
  - Pallor [Recovered/Resolved]
  - Palpitations [Recovered/Resolved]
  - Nausea [Recovered/Resolved]
  - Infusion related reaction [Recovered/Resolved]
  - Drug specific antibody present [Unknown]
  - Drug level decreased [Unknown]
  - Abdominal pain [Unknown]
  - Off label use [Unknown]

NARRATIVE: CASE EVENT DATE: 20230307
